FAERS Safety Report 5935743-1 (Version None)
Quarter: 2008Q4

REPORT INFORMATION
  Report Type: 
  Country: None (occurrence: None)
  Receive Date: 20081030
  Receipt Date: 20081014
  Transmission Date: 20090506
  Serious: Yes (Disabling, Other)
  Sender: FDA-Public Use
  Company Number: DE-ASTRAZENECA-2008PK01937

PATIENT
  Age: 16864 Day
  Sex: Female
  Weight: 63 kg

DRUGS (3)
  1. ZOLADEX [Suspect]
     Indication: UTERINE LEIOMYOMA
     Route: 058
     Dates: start: 20080611, end: 20080709
  2. KARVEZIDE [Concomitant]
     Indication: HYPERTENSION
     Dosage: 300/12.5 MG
     Dates: start: 20070801
  3. THYRONAJOD [Concomitant]
     Indication: THYROID NEOPLASM
     Dates: start: 20060101

REACTIONS (6)
  - BLOOD PRESSURE INCREASED [None]
  - HOT FLUSH [None]
  - MIGRAINE [None]
  - NAUSEA [None]
  - VAGINAL HAEMORRHAGE [None]
  - VISUAL IMPAIRMENT [None]
